FAERS Safety Report 8110685-4 (Version None)
Quarter: 2012Q1

REPORT INFORMATION
  Report Type: 
  Country: None (occurrence: None)
  Receive Date: 20120203
  Receipt Date: 20120120
  Transmission Date: 20120608
  Serious: Yes (Hospitalization)
  Sender: FDA-Public Use
  Company Number: US-BAYER-201036621NA

PATIENT
  Age: 18 Year
  Sex: Female
  Weight: 69.841 kg

DRUGS (7)
  1. DOXYCYCLINE [Concomitant]
  2. TRAZODONE HCL [Concomitant]
     Dosage: 25 MG, UNK
  3. YAZ [Suspect]
     Indication: ACNE
  4. FLAGYL [Concomitant]
  5. LOESTRIN 1.5/30 [Concomitant]
  6. LAMICTAL [Concomitant]
     Indication: BIPOLAR DISORDER
     Dosage: UNK
  7. ZOLOFT [Concomitant]
     Indication: DEPRESSION
     Dosage: 50 MG, UNK

REACTIONS (3)
  - MENTAL DISORDER [None]
  - INJURY [None]
  - PULMONARY THROMBOSIS [None]
